FAERS Safety Report 6041783-7 (Version None)
Quarter: 2009Q1

REPORT INFORMATION
  Report Type: 
  Country: None (occurrence: None)
  Receive Date: 20090116
  Receipt Date: 20090106
  Transmission Date: 20090719
  Serious: Yes (Other)
  Sender: FDA-Public Use
  Company Number: CH-PFIZER INC-2009152433

PATIENT

DRUGS (2)
  1. MISOPROSTOL [Suspect]
     Indication: ABORTION
     Dosage: FREQUENCY: ONCE,
     Route: 048
     Dates: start: 20080716, end: 20080716
  2. MIFEGYNE [Suspect]
     Indication: ABORTION
     Dosage: FREQUENCY: ONCE,
     Route: 048
     Dates: start: 20080704, end: 20080704

REACTIONS (4)
  - ABORTION INDUCED [None]
  - DRUG EXPOSURE DURING PREGNANCY [None]
  - DRUG INEFFECTIVE FOR UNAPPROVED INDICATION [None]
  - INDUCED ABORTION FAILED [None]
